FAERS Safety Report 4467133-5 (Version None)
Quarter: 2004Q4

REPORT INFORMATION
  Report Type: 
  Country: None (occurrence: None)
  Receive Date: 20041004
  Receipt Date: 20041004
  Transmission Date: 20050328
  Serious: Yes (Hospitalization, Disabling)
  Sender: FDA-Public Use
  Company Number: None

PATIENT
  Age: 65 Year
  Sex: Female
  Weight: 26.7622 kg

DRUGS (5)
  1. PHENERGAN [Suspect]
     Indication: NAUSEA
     Dosage: 25 MG IV Q 6 PRN 25 MG + INTRATRIAL RATHER THAN IV+
     Route: 042
     Dates: start: 20040514
  2. MORPHINE [Concomitant]
  3. D5RL [Concomitant]
  4. ZANTAC [Concomitant]
  5. ANCEF [Concomitant]

REACTIONS (10)
  - FINGER AMPUTATION [None]
  - GRIP STRENGTH DECREASED [None]
  - IATROGENIC INJURY [None]
  - MEDICATION ERROR [None]
  - OEDEMA PERIPHERAL [None]
  - PAIN IN EXTREMITY [None]
  - PERIPHERAL COLDNESS [None]
  - SKIN DISCOLOURATION [None]
  - SWELLING [None]
  - WOUND COMPLICATION [None]
